FAERS Safety Report 6129031-0 (Version None)
Quarter: 2009Q1

REPORT INFORMATION
  Report Type: 
  Country: None (occurrence: None)
  Receive Date: 20090324
  Receipt Date: 20090311
  Transmission Date: 20090719
  Serious: Yes (Other)
  Sender: FDA-Public Use
  Company Number: BR-ELI_LILLY_AND_COMPANY-BR200903002848

PATIENT
  Sex: Male
  Weight: 63 kg

DRUGS (4)
  1. FORTEO [Suspect]
     Dosage: 20 UG, DAILY (1/D)
     Route: 058
     Dates: start: 20080901
  2. CARDIZEM [Concomitant]
     Indication: ARRHYTHMIA
     Dosage: UNK, UNKNOWN
     Route: 065
  3. OMNIC [Concomitant]
     Indication: PROSTATIC DISORDER
     Dosage: 4 MG, UNKNOWN
     Route: 065
  4. OMEPRAZOLE [Concomitant]
     Dosage: UNK, UNKNOWN
     Route: 065

REACTIONS (4)
  - BACK PAIN [None]
  - COUGH [None]
  - DYSPNOEA [None]
  - PULMONARY FIBROSIS [None]
